FAERS Safety Report 8348032-5 (Version None)
Quarter: 2012Q2

REPORT INFORMATION
  Report Type: 
  Country: None (occurrence: None)
  Receive Date: 20120509
  Receipt Date: 20120502
  Transmission Date: 20120825
  Serious: Yes (Other)
  Sender: FDA-Public Use
  Company Number: US-BAYER-2011-081820

PATIENT
  Age: 37 Year
  Sex: Female
  Weight: 105.22 kg

DRUGS (5)
  1. YASMIN [Suspect]
     Indication: PREMENSTRUAL SYNDROME
     Dosage: UNK
     Route: 048
     Dates: start: 20060101, end: 20070101
  2. YASMIN [Suspect]
     Dosage: UNK
     Route: 048
     Dates: start: 20090227, end: 20090527
  3. CYMBALTA [Concomitant]
     Indication: DEPRESSION
     Dosage: UNK
  4. NSAID'S [Concomitant]
     Dosage: UNK
     Dates: start: 20070101
  5. RELPAX [Concomitant]
     Indication: MIGRAINE
     Dosage: UNK

REACTIONS (6)
  - POST-TRAUMATIC STRESS DISORDER [None]
  - BIPOLAR I DISORDER [None]
  - ANXIETY [None]
  - GALLBLADDER INJURY [None]
  - INJURY [None]
  - PAIN [None]
